FAERS Safety Report 23171981 (Version 1)
Quarter: 2023Q4

REPORT INFORMATION
  Report Type: Spontaneous
  Country: ES (occurrence: ES)
  Receive Date: 20231110
  Receipt Date: 20231110
  Transmission Date: 20240110
  Serious: Yes (Death, Hospitalization, Other)
  Sender: FDA-Public Use
  Company Number: ES-SA-SAC20230919000110

PATIENT
  Age: 69 Year
  Sex: Male
  Weight: 60 kg

DRUGS (10)
  1. ALLOPURINOL [Suspect]
     Active Substance: ALLOPURINOL
     Indication: Gout
     Dosage: 300 MILLIGRAM, QD
     Route: 048
     Dates: start: 20211006
  2. BISOPROLOL [Suspect]
     Active Substance: BISOPROLOL\BISOPROLOL FUMARATE
     Indication: Cardiac disorder
     Dosage: 1.25 MILLIGRAM, QD
     Route: 048
  3. RIVAROXABAN [Suspect]
     Active Substance: RIVAROXABAN
     Indication: Atrial fibrillation
     Dosage: 20 MILLIGRAM, QD
     Route: 048
  4. SPIRONOLACTONE [Suspect]
     Active Substance: SPIRONOLACTONE
     Indication: Cardiorenal syndrome
     Dosage: 25 MILLIGRAM, QD
     Route: 048
     Dates: start: 20220704
  5. FABRAZYME [Suspect]
     Active Substance: AGALSIDASE BETA
     Indication: Fabry^s disease
     Dosage: 1 MILLIGRAM/KILOGRAM, Q2W
     Route: 042
     Dates: start: 20210119, end: 20230802
  6. DIGOXIN [Suspect]
     Active Substance: DIGOXIN
     Indication: Atrial fibrillation
     Dosage: UNK
     Route: 048
  7. DAPAGLIFLOZIN [Suspect]
     Active Substance: DAPAGLIFLOZIN
     Indication: Proteinuria
     Dosage: 10 MILLIGRAM, QD
     Route: 048
     Dates: start: 20211004
  8. OMEPRAZOLE [Concomitant]
     Active Substance: OMEPRAZOLE
     Indication: Ulcer
     Dosage: 20 MILLIGRAM, QD
     Route: 048
     Dates: start: 20210826
  9. AMIODARONE [Concomitant]
     Active Substance: AMIODARONE
     Indication: Ventricular tachycardia
     Dosage: 200 MILLIGRAM, QD
     Route: 048
     Dates: start: 20230710
  10. FUROSEMIDE [Concomitant]
     Active Substance: FUROSEMIDE
     Indication: Cardiac failure
     Dosage: 40 MILLIGRAM, BID
     Route: 048

REACTIONS (16)
  - Respiratory disorder [Fatal]
  - Pulmonary alveolar haemorrhage [Unknown]
  - Multiple organ dysfunction syndrome [Unknown]
  - Productive cough [Unknown]
  - Musculoskeletal chest pain [Unknown]
  - Hypotension [Unknown]
  - General physical health deterioration [Unknown]
  - Dyspnoea exertional [Unknown]
  - Oxygen saturation decreased [Unknown]
  - Anuria [Unknown]
  - Haemoptysis [Unknown]
  - Hyperlactacidaemia [Unknown]
  - Condition aggravated [Unknown]
  - Renal failure [Unknown]
  - Malaise [Unknown]
  - Stupor [Unknown]
